FAERS Safety Report 19467661 (Version 1)
Quarter: 2021Q2

REPORT INFORMATION
  Report Type: Spontaneous
  Country: US (occurrence: US)
  Receive Date: 20210626
  Receipt Date: 20210626
  Transmission Date: 20210717
  Serious: Yes (Death, Hospitalization)
  Sender: FDA-Public Use
  Company Number: None

PATIENT
  Sex: Male
  Weight: 106.8 kg

DRUGS (10)
  1. CYCLOPHOSPHAMIDE. [Suspect]
     Active Substance: CYCLOPHOSPHAMIDE
     Dates: end: 20150916
  2. ETOPOSIDE(VP?16) [Suspect]
     Active Substance: ETOPOSIDE
     Dates: end: 20160422
  3. LEUCOVORIN. [Concomitant]
     Active Substance: LEUCOVORIN
  4. ONCASPAR [Suspect]
     Active Substance: PEGASPARGASE
     Dates: end: 20160422
  5. CYTARABINE. [Suspect]
     Active Substance: CYTARABINE
     Dates: end: 20160422
  6. MERCAPTOPURINE. [Suspect]
     Active Substance: MERCAPTOPURINE
     Dates: end: 20151001
  7. DAUNORUBICIN [Suspect]
     Active Substance: DAUNORUBICIN
     Dates: end: 20150904
  8. DEXAMETHASONE. [Suspect]
     Active Substance: DEXAMETHASONE
     Dates: end: 20150820
  9. VINCRISTINE SULFATE. [Suspect]
     Active Substance: VINCRISTINE SULFATE
     Dates: end: 20150904
  10. METHOTREXATE. [Suspect]
     Active Substance: METHOTREXATE
     Dates: end: 20160418

REACTIONS (8)
  - Unresponsive to stimuli [None]
  - Carotid artery stenosis [None]
  - Body temperature increased [None]
  - Blindness unilateral [None]
  - Blindness transient [None]
  - Chills [None]
  - Acute myocardial infarction [None]
  - Febrile neutropenia [None]

NARRATIVE: CASE EVENT DATE: 20160520
